FAERS Safety Report 5107322-X (Version None)
Quarter: 2006Q3

REPORT INFORMATION
  Report Type: 
  Country: None (occurrence: None)
  Receive Date: 20060914
  Receipt Date: 20060901
  Transmission Date: 20061208
  Serious: Yes (Other)
  Sender: FDA-Public Use
  Company Number: 2006092644

PATIENT
  Age: 52 Year
  Sex: Male

DRUGS (6)
  1. LYRICA [Suspect]
     Indication: NEURITIS
     Dates: start: 20060306, end: 20060530
  2. LYRICA [Suspect]
     Indication: SCIATICA
     Dates: start: 20060306, end: 20060530
  3. NEURONTIN [Suspect]
     Indication: NEURITIS
     Dates: end: 20060306
  4. CYMBALTA [Suspect]
     Indication: DEPRESSION
     Dates: end: 20060306
  5. ASPIRIN [Concomitant]
  6. ANACIN (ACETYLSALICYLIC ACID, CAFFEINE) [Concomitant]

REACTIONS (60)
  - ABNORMAL BEHAVIOUR [None]
  - ARTHRALGIA [None]
  - ASTHENIA [None]
  - BACK PAIN [None]
  - BIPOLAR DISORDER [None]
  - BLOOD GLUCOSE INCREASED [None]
  - BLOOD INSULIN INCREASED [None]
  - BODY MASS INDEX DECREASED [None]
  - BONE PAIN [None]
  - C-REACTIVE PROTEIN INCREASED [None]
  - COUGH [None]
  - DEPRESSION [None]
  - DIARRHOEA [None]
  - DRY MOUTH [None]
  - DYSKINESIA [None]
  - DYSPHONIA [None]
  - EMOTIONAL DISTRESS [None]
  - EXCORIATION [None]
  - FALL [None]
  - FLAT AFFECT [None]
  - GAIT DISTURBANCE [None]
  - GLUCOSE TOLERANCE IMPAIRED [None]
  - HEART RATE DECREASED [None]
  - HYPERHIDROSIS [None]
  - HYPERSOMNIA [None]
  - HYPERTENSION [None]
  - HYPOAESTHESIA [None]
  - HYPOKINESIA [None]
  - INCREASED APPETITE [None]
  - INCREASED TENDENCY TO BRUISE [None]
  - INCREASED UPPER AIRWAY SECRETION [None]
  - INSOMNIA [None]
  - INSULIN C-PEPTIDE INCREASED [None]
  - IRRITABILITY [None]
  - LACERATION [None]
  - LIPIDS INCREASED [None]
  - MOVEMENT DISORDER [None]
  - MUSCLE SPASMS [None]
  - MUSCULAR WEAKNESS [None]
  - MYALGIA [None]
  - NECK PAIN [None]
  - OBSESSIVE-COMPULSIVE DISORDER [None]
  - PAIN IN EXTREMITY [None]
  - PARAESTHESIA [None]
  - PRURITUS [None]
  - SCIATICA [None]
  - SKIN LACERATION [None]
  - SLEEP DISORDER [None]
  - SPEECH DISORDER [None]
  - STRESS AT WORK [None]
  - THERAPY NON-RESPONDER [None]
  - THINKING ABNORMAL [None]
  - TOOTH ABSCESS [None]
  - TREMOR [None]
  - URINARY RETENTION [None]
  - URTICARIA [None]
  - VISION BLURRED [None]
  - VISUAL DISTURBANCE [None]
  - WEIGHT DECREASED [None]
  - WEIGHT INCREASED [None]
